FAERS Safety Report 4649678-8 (Version None)
Quarter: 2005Q2

REPORT INFORMATION
  Report Type: 
  Country: None (occurrence: None)
  Receive Date: 20050502
  Receipt Date: 20050425
  Transmission Date: 20051028
  Serious: Yes (Hospitalization, Disabling)
  Sender: FDA-Public Use
  Company Number: 200513527US

PATIENT
  Sex: Male
  Weight: 103.87 kg

DRUGS (9)
  1. APIDRA [Suspect]
     Indication: DIABETES MELLITUS
     Dosage: DOSE: 15AM, 6PM, AND 13PM
     Route: 058
     Dates: start: 20041210
  2. LANTUS [Suspect]
     Indication: DIABETES MELLITUS
     Route: 058
  3. ZOCOR [Concomitant]
     Route: 048
  4. RANITIDINE [Concomitant]
     Route: 048
  5. NEURONTIN [Concomitant]
  6. PENTOXIFYLLINE [Concomitant]
  7. METOPROLOL TARTRATE [Concomitant]
  8. NITROPASTE [Concomitant]
     Dosage: DOSE: UNK
  9. ZITHROMAX [Concomitant]

REACTIONS (4)
  - CONFUSIONAL STATE [None]
  - CONVULSION [None]
  - HYPOGLYCAEMIC COMA [None]
  - LOSS OF CONSCIOUSNESS [None]
